FAERS Safety Report 7441767-8 (Version None)
Quarter: 2011Q2

REPORT INFORMATION
  Report Type: 
  Country: None (occurrence: None)
  Receive Date: 20110426
  Receipt Date: 20110426
  Transmission Date: 20111010
  Serious: Yes (Hospitalization)
  Sender: FDA-Public Use
  Company Number: None

PATIENT
  Age: 3 Year

DRUGS (1)
  1. FLEBOGAMMA [Suspect]
     Dosage: IV
     Route: 042

REACTIONS (13)
  - FACE OEDEMA [None]
  - COUGH [None]
  - INFUSION RELATED REACTION [None]
  - ABDOMINAL PAIN UPPER [None]
  - TEARFULNESS [None]
  - DYSPNOEA [None]
  - PRURITUS [None]
  - PALLOR [None]
  - HEADACHE [None]
  - VOMITING [None]
  - FLUSHING [None]
  - ERYTHEMA [None]
  - WHEEZING [None]
